FAERS Safety Report 7753501-2 (Version None)
Quarter: 2011Q3

REPORT INFORMATION
  Report Type: 
  Country: None (occurrence: None)
  Receive Date: 20110915
  Receipt Date: 20110907
  Transmission Date: 20111222
  Serious: Yes (Hospitalization)
  Sender: FDA-Public Use
  Company Number: FI-PERRIGO-11FI007407

PATIENT
  Age: 69 Year
  Sex: Female

DRUGS (2)
  1. IMIQUIMOD [Suspect]
     Indication: ACTINIC KERATOSIS
     Dosage: UNK
     Route: 061
     Dates: start: 20090801
  2. IMIQUIMOD [Suspect]
     Dosage: UNK, THREE TIMES WEEKLY
     Route: 061
     Dates: start: 20100101, end: 20100101

REACTIONS (15)
  - STAPHYLOCOCCAL SKIN INFECTION [None]
  - ORTHOSTATIC HYPOTENSION [None]
  - LEUKOPENIA [None]
  - LOCAL REACTION [None]
  - DEHYDRATION [None]
  - NAUSEA [None]
  - DECREASED APPETITE [None]
  - MUSCULAR WEAKNESS [None]
  - SCAB [None]
  - EYE SWELLING [None]
  - GAIT DISTURBANCE [None]
  - ERYTHEMA [None]
  - DIZZINESS [None]
  - WEIGHT DECREASED [None]
  - HYPOTENSION [None]
